FAERS Safety Report 13556529 (Version 1)
Quarter: 2017Q2

REPORT INFORMATION
  Report Type: Spontaneous
  Country: US (occurrence: US)
  Receive Date: 20170517
  Receipt Date: 20170517
  Transmission Date: 20170830
  Serious: No
  Sender: FDA-Public Use
  Company Number: US-SA-2017SA022633

PATIENT
  Age: 67 Year
  Sex: Female
  Weight: 61.23 kg

DRUGS (2)
  1. TOUJEO [Suspect]
     Active Substance: INSULIN GLARGINE
     Indication: TYPE 1 DIABETES MELLITUS
     Dosage: DOSE:26 UNIT(S)
     Route: 065
     Dates: start: 20160101
  2. SOLOSTAR [Suspect]
     Active Substance: DEVICE
     Indication: TYPE 1 DIABETES MELLITUS
     Dates: start: 20160101

REACTIONS (2)
  - Hyperglycaemia [Unknown]
  - Device issue [Unknown]

NARRATIVE: CASE EVENT DATE: 20170206
